FAERS Safety Report 4973260-6 (Version None)
Quarter: 2006Q2

REPORT INFORMATION
  Report Type: 
  Country: None (occurrence: None)
  Receive Date: 20060414
  Receipt Date: 20060403
  Transmission Date: 20061013
  Serious: Yes (Other)
  Sender: FDA-Public Use
  Company Number: US-MERCK-0604USA00494

PATIENT
  Age: 61 Year
  Sex: Male
  Weight: 103 kg

DRUGS (21)
  1. VIOXX [Suspect]
     Indication: ARTHRITIS
     Route: 048
     Dates: start: 19991019, end: 20031126
  2. VIOXX [Suspect]
     Route: 048
     Dates: start: 19991019, end: 20031126
  3. VIOXX [Suspect]
     Route: 048
     Dates: start: 19991019, end: 20031126
  4. CHLORPROPAMIDE [Concomitant]
     Route: 065
  5. ULTRAM [Concomitant]
     Route: 065
     Dates: start: 19980101, end: 20010901
  6. DOXYCYCLINE [Concomitant]
     Route: 065
  7. WELLBUTRIN [Concomitant]
     Route: 065
     Dates: start: 19991001, end: 20031001
  8. OXYCONTIN [Concomitant]
     Route: 065
     Dates: start: 20011201, end: 20030901
  9. FAMOTIDINE [Concomitant]
     Route: 065
  10. ZITHROMAX [Concomitant]
     Route: 065
  11. ALBUTEROL [Concomitant]
     Route: 065
  12. PROMETHAZINE [Concomitant]
     Route: 065
  13. VIOXX [Suspect]
     Route: 048
     Dates: start: 19991019, end: 20031126
  14. METOPROLOL [Concomitant]
     Route: 065
  15. NITROQUICK [Concomitant]
     Route: 065
  16. RANITIDINE [Concomitant]
     Route: 065
  17. LOTREL [Concomitant]
     Route: 065
  18. ZELNORM [Concomitant]
     Route: 065
  19. GLUCOPHAGE [Concomitant]
     Route: 065
  20. AVAPRO [Concomitant]
     Route: 065
  21. LOPRESSOR [Concomitant]
     Route: 065

REACTIONS (9)
  - ABDOMINAL PAIN UPPER [None]
  - BACK INJURY [None]
  - CARDIAC DISORDER [None]
  - CARDIOVASCULAR DISORDER [None]
  - CEREBROVASCULAR ACCIDENT [None]
  - CYST [None]
  - LIVER DISORDER [None]
  - RESPIRATORY TRACT INFECTION [None]
  - SPINAL FUSION SURGERY [None]
